FAERS Safety Report 5372657-2 (Version None)
Quarter: 2007Q2

REPORT INFORMATION
  Report Type: 
  Country: None (occurrence: None)
  Receive Date: 20070618
  Receipt Date: 20070503
  Transmission Date: 20071010
  Serious: Yes (Other)
  Sender: FDA-Public Use
  Company Number: 07-001010

PATIENT
  Sex: Female

DRUGS (2)
  1. LOESTRIN 24 FE [Suspect]
     Dosage: 20/1000 UG, QD, ORAL
     Route: 048
  2. ESTROSTEP FE [Suspect]
     Dosage: 20-30-35/1000 UG, QD, ORAL
     Route: 048

REACTIONS (1)
  - HEPATIC ADENOMA [None]
